FAERS Safety Report 14849014 (Version 1)
Quarter: 2018Q2

REPORT INFORMATION
  Report Type: Not Available
  Country: DE (occurrence: DE)
  Receive Date: 20180504
  Receipt Date: 20180504
  Transmission Date: 20180711
  Serious: Yes (Other)
  Sender: FDA-Public Use
  Company Number: DE-ANIPHARMA-2018-DE-000068

PATIENT
  Age: 62 Year
  Sex: Female

DRUGS (4)
  1. ANASTROZOLE. [Suspect]
     Active Substance: ANASTROZOLE
     Indication: BREAST CANCER
     Dosage: 1MG
     Route: 048
  2. ARGININE [Concomitant]
     Active Substance: ARGININE
  3. LETROZOLE. [Suspect]
     Active Substance: LETROZOLE
     Route: 048
  4. CONCOR [Concomitant]
     Active Substance: BISOPROLOL FUMARATE

REACTIONS (9)
  - Insomnia [Unknown]
  - Blood pressure increased [Unknown]
  - Photopsia [Unknown]
  - Vitreous detachment [Unknown]
  - Bone pain [Unknown]
  - Retinal tear [Unknown]
  - Arthralgia [Unknown]
  - Retinal haemorrhage [Unknown]
  - Hot flush [Unknown]
